FAERS Safety Report 13977856 (Version 1)
Quarter: 2017Q3

REPORT INFORMATION
  Report Type: Spontaneous
  Country: US (occurrence: US)
  Receive Date: 20170915
  Receipt Date: 20170915
  Transmission Date: 20171128
  Serious: Yes (Hospitalization)
  Sender: FDA-Public Use
  Company Number: US-BAUSCH-BL-2017-026832

PATIENT
  Age: 2 Year
  Sex: Male

DRUGS (1)
  1. FLIBANSERIN [Suspect]
     Active Substance: FLIBANSERIN
     Indication: PRODUCT USED FOR UNKNOWN INDICATION
     Dosage: SUSPECTED TO HAVE CONSUMED?A MAXIMUM OF SIX 100 MG TABLETS OF FLIBANSERIN
     Route: 048

REACTIONS (2)
  - Toxicity to various agents [Recovering/Resolving]
  - Accidental exposure to product by child [Unknown]
